FAERS Safety Report 9034672 (Version 1)
Quarter: 2013Q1

REPORT INFORMATION
  Report Type: Spontaneous
  Country: CA (occurrence: None)
  Receive Date: 20130115
  Receipt Date: 20130115
  Transmission Date: 20140127
  Serious: Yes (Other)
  Sender: FDA-Public Use
  Company Number: AE-13-001-FD

PATIENT
  Age: 4 Year
  Sex: Male

DRUGS (3)
  1. FLUOR-A-DAY [Suspect]
     Route: 048
     Dates: start: 20130107, end: 20130107
  2. MULTIVITAMIN [Concomitant]
  3. CALCIUM SUPPLEMENTS [Concomitant]

REACTIONS (2)
  - Anaphylactic reaction [None]
  - Oropharyngeal pain [None]
